FAERS Safety Report 18288786 (Version 1)
Quarter: 2020Q3

REPORT INFORMATION
  Report Type: Spontaneous
  Country: US (occurrence: US)
  Receive Date: 20200920
  Receipt Date: 20200920
  Transmission Date: 20201103
  Serious: Yes (Hospitalization, Other)
  Sender: FDA-Public Use
  Company Number: None

PATIENT
  Age: 54 Year
  Sex: Female
  Weight: 110.7 kg

DRUGS (3)
  1. PROGESTERONE. [Concomitant]
     Active Substance: PROGESTERONE
  2. VENLAFAXINE [Concomitant]
     Active Substance: VENLAFAXINE HYDROCHLORIDE
  3. NATURE?THROID [Suspect]
     Active Substance: THYROID, PORCINE
     Indication: THYROID DISORDER
     Dosage: ?          QUANTITY:90 TABLET(S);?
     Route: 048
     Dates: start: 20180101, end: 20200918

REACTIONS (7)
  - Pain [None]
  - Recalled product administered [None]
  - Alopecia [None]
  - Pain in extremity [None]
  - Fatigue [None]
  - Depression [None]
  - Cerebrovascular accident [None]

NARRATIVE: CASE EVENT DATE: 20200810
